FAERS Safety Report 6539117-4 (Version None)
Quarter: 2010Q1

REPORT INFORMATION
  Report Type: 
  Country: None (occurrence: None)
  Receive Date: 20100115
  Receipt Date: 20100111
  Transmission Date: 20100710
  Serious: Yes (Life-Threatening, Hospitalization, Other)
  Sender: FDA-Public Use
  Company Number: PHEH2010US00479

PATIENT
  Sex: Male
  Weight: 80.726 kg

DRUGS (13)
  1. EXJADE [Suspect]
     Indication: T-CELL CHRONIC LYMPHOCYTIC LEUKAEMIA
     Dosage: 500 MG, QD
     Route: 048
     Dates: start: 20091217, end: 20091228
  2. EXJADE [Suspect]
     Dosage: 500 MG, QD
     Route: 048
     Dates: start: 20100104, end: 20100112
  3. PLAVIX [Concomitant]
     Dosage: 75 MG, QD
     Route: 048
  4. ASPIRIN [Concomitant]
     Dosage: 325 MG, QD
     Route: 048
  5. LANOXIN [Concomitant]
     Dosage: 0.125 MG, QD
     Route: 048
  6. LASIX [Concomitant]
     Dosage: 40 MG, BID
     Route: 048
  7. LISINOPRIL [Concomitant]
     Dosage: 10 MG, QD
     Route: 048
  8. FINASTERIDE [Concomitant]
     Dosage: 5 MG, QD
     Route: 048
  9. FLOMAX [Concomitant]
     Dosage: 0.4 MG, QD
     Route: 048
  10. CLARITHROMYCIN [Concomitant]
     Dosage: 500 MG, QD
     Route: 048
  11. M.V.I. [Concomitant]
     Dosage: UNK
     Route: 048
  12. COD-LIVER OIL [Concomitant]
     Dosage: UNK
     Route: 048
  13. FISH OIL [Concomitant]
     Dosage: UNK
     Route: 048

REACTIONS (11)
  - BLOOD GLUCOSE INCREASED [None]
  - CSF WHITE BLOOD CELL COUNT DECREASED [None]
  - FACE INJURY [None]
  - FALL [None]
  - HYPONATRAEMIA [None]
  - HYPOTENSION [None]
  - MALAISE [None]
  - PAIN [None]
  - POST-TRAUMATIC HEADACHE [None]
  - SUBDURAL HAEMATOMA [None]
  - TRAUMATIC BRAIN INJURY [None]
